FAERS Safety Report 7822256-5 (Version None)
Quarter: 2011Q4

REPORT INFORMATION
  Report Type: 
  Country: None (occurrence: None)
  Receive Date: 20111018
  Receipt Date: 20110302
  Transmission Date: 20120403
  Serious: No
  Sender: FDA-Public Use
  Company Number: US-ASTRAZENECA-2011SE11392

PATIENT
  Age: 85 Year
  Sex: Female

DRUGS (4)
  1. SPIRIVA [Concomitant]
  2. SYMBICORT [Suspect]
     Indication: CHRONIC OBSTRUCTIVE PULMONARY DISEASE
     Dosage: 2 PUFFS BID
     Route: 055
     Dates: start: 20090901
  3. ALBUTEROL [Concomitant]
  4. VENTOLIN [Concomitant]

REACTIONS (4)
  - PALPITATIONS [None]
  - VISION BLURRED [None]
  - DYSPHONIA [None]
  - ALOPECIA [None]
